FAERS Safety Report 7944955-7 (Version None)
Quarter: 2011Q4

REPORT INFORMATION
  Report Type: 
  Country: None (occurrence: None)
  Receive Date: 20111129
  Receipt Date: 20111123
  Transmission Date: 20120403
  Serious: Yes (Life-Threatening, Hospitalization, Disabling, Other)
  Sender: FDA-Public Use
  Company Number: PHHY2011AU81520

PATIENT
  Sex: Female

DRUGS (5)
  1. ATORVASTATIN [Concomitant]
     Dosage: UNK UKN, UNK
  2. TASIGNA [Suspect]
     Indication: CHRONIC MYELOID LEUKAEMIA
     Dosage: 600 MG, BID
     Route: 048
     Dates: start: 20080201, end: 20110601
  3. ASPIRIN AND DIPYRIDAMOLE [Concomitant]
  4. DIPYRIDAMOLE [Concomitant]
     Dosage: UNK UKN, UNK
  5. ASPIRIN [Concomitant]
     Dosage: UNK UKN, UNK

REACTIONS (10)
  - ACUTE MYOCARDIAL INFARCTION [None]
  - MUSCULOSKELETAL PAIN [None]
  - MYOCARDIAL ISCHAEMIA [None]
  - DYSPNOEA EXERTIONAL [None]
  - LIMB DISCOMFORT [None]
  - CHEST PAIN [None]
  - CHEST DISCOMFORT [None]
  - FATIGUE [None]
  - PERIPHERAL VASCULAR DISORDER [None]
  - ANGINA PECTORIS [None]
